FAERS Safety Report 4585171-9 (Version None)
Quarter: 2005Q1

REPORT INFORMATION
  Report Type: 
  Country: None (occurrence: None)
  Receive Date: 20050217
  Receipt Date: 20050114
  Transmission Date: 20050727
  Serious: No
  Sender: FDA-Public Use
  Company Number: US-GLAXOSMITHKLINE-A0540765A

PATIENT
  Age: 35 Year
  Sex: Female
  Weight: 59.1 kg

DRUGS (2)
  1. WELLBUTRIN XL [Suspect]
     Indication: DEPRESSION
     Dosage: 150MG PER DAY
     Route: 048
     Dates: start: 20050101
  2. XANAX [Concomitant]
     Indication: INSOMNIA
     Dosage: .25U AS REQUIRED
     Route: 048

REACTIONS (1)
  - HOT FLUSH [None]
